FAERS Safety Report 5831607-2 (Version None)
Quarter: 2008Q3

REPORT INFORMATION
  Report Type: 
  Country: None (occurrence: None)
  Receive Date: 20080801
  Receipt Date: 20080722
  Transmission Date: 20090109
  Serious: Yes (Other)
  Sender: FDA-Public Use
  Company Number: KR-PFIZER INC-2008062497

PATIENT
  Sex: Female

DRUGS (4)
  1. NEURONTIN [Suspect]
     Indication: NERVE INJURY
     Route: 048
  2. ULTRACET [Concomitant]
     Indication: NERVE INJURY
     Route: 048
  3. MUSCLE RELAXANTS [Concomitant]
     Indication: NERVE INJURY
     Route: 048
  4. ALL OTHER THERAPEUTIC PRODUCTS [Concomitant]
     Indication: NERVE INJURY
     Route: 048

REACTIONS (6)
  - ABDOMINAL PAIN UPPER [None]
  - EYE OEDEMA [None]
  - HYPOAESTHESIA [None]
  - OEDEMA PERIPHERAL [None]
  - PARAESTHESIA [None]
  - RASH [None]
